FAERS Safety Report 8581908-2 (Version None)
Quarter: 2012Q3

REPORT INFORMATION
  Report Type: 
  Country: None (occurrence: None)
  Receive Date: 20120727
  Receipt Date: 20120716
  Transmission Date: 20120928
  Serious: Yes (Other)
  Sender: FDA-Public Use
  Company Number: 20120462

PATIENT
  Age: 29 Year
  Sex: Male

DRUGS (1)
  1. SODIUM ACETATE [Suspect]
     Indication: RESUSCITATION
     Dosage: 154 MEQ IN 1L AT 100 CC/HR INTRAVENOUS
     Route: 042

REACTIONS (1)
  - LACTIC ACIDOSIS [None]
